FAERS Safety Report 11935342 (Version 6)
Quarter: 2018Q4

REPORT INFORMATION
  Report Type: Report from Study
  Country: FR (occurrence: FR)
  Receive Date: 20160121
  Receipt Date: 20181029
  Transmission Date: 20190204
  Serious: Yes (Hospitalization, Other)
  Sender: FDA-Public Use
  Company Number: FR-JNJFOC-20160111198

PATIENT
  Age: 55 Year
  Sex: Male
  Weight: 74 kg

DRUGS (26)
  1. ENBREL [Suspect]
     Active Substance: ETANERCEPT
     Indication: PRODUCT USED FOR UNKNOWN INDICATION
     Route: 058
     Dates: start: 20150528, end: 20150828
  2. ACITRETIN. [Concomitant]
     Active Substance: ACITRETIN
     Indication: PRODUCT USED FOR UNKNOWN INDICATION
     Route: 048
     Dates: start: 20160926, end: 20161026
  3. CICLOPIROX. [Concomitant]
     Active Substance: CICLOPIROX
     Route: 065
     Dates: start: 20131209, end: 20140310
  4. HUMIRA [Suspect]
     Active Substance: ADALIMUMAB
     Indication: PSORIASIS
     Route: 058
     Dates: start: 20130318, end: 20150321
  5. ACITRETIN. [Concomitant]
     Active Substance: ACITRETIN
     Indication: PRODUCT USED FOR UNKNOWN INDICATION
     Route: 048
     Dates: start: 20180108, end: 201803
  6. BETNEVAL [Concomitant]
     Active Substance: BETAMETHASONE VALERATE
     Route: 065
     Dates: start: 20140623, end: 20141027
  7. DESLORATADINE. [Concomitant]
     Active Substance: DESLORATADINE
     Route: 065
     Dates: start: 20150220, end: 20150320
  8. METHOTREXATE SODIUM. [Suspect]
     Active Substance: METHOTREXATE SODIUM
     Indication: PSORIASIS
     Route: 048
     Dates: start: 20100315, end: 20100329
  9. METHOTREXATE SODIUM. [Suspect]
     Active Substance: METHOTREXATE SODIUM
     Indication: PSORIASIS
     Route: 048
     Dates: start: 20150528, end: 20150910
  10. ACITRETIN. [Concomitant]
     Active Substance: ACITRETIN
     Indication: PRODUCT USED FOR UNKNOWN INDICATION
     Route: 048
     Dates: start: 201803
  11. BETESIL [Concomitant]
     Route: 065
     Dates: start: 20151123, end: 20160222
  12. DAIVOBET [Concomitant]
     Active Substance: BETAMETHASONE DIPROPIONATE\CALCIPOTRIENE
     Route: 065
     Dates: start: 20130318
  13. XAMIOL [Concomitant]
     Active Substance: BETAMETHASONE DIPROPIONATE\CALCIPOTRIENE HYDRATE
     Route: 065
     Dates: start: 20130318, end: 20140310
  14. DIPROSONE [Concomitant]
     Active Substance: BETAMETHASONE DIPROPIONATE
     Route: 065
     Dates: start: 20141027, end: 20150202
  15. HUMIRA [Suspect]
     Active Substance: ADALIMUMAB
     Indication: PSORIASIS
     Route: 058
     Dates: start: 20130325, end: 20150325
  16. DEXERYL [Concomitant]
     Route: 065
     Dates: start: 20130318
  17. SEBIPROX [Concomitant]
     Route: 065
     Dates: start: 20130617, end: 20140310
  18. STELARA [Suspect]
     Active Substance: USTEKINUMAB
     Indication: PSORIASIS
     Route: 058
     Dates: start: 20100419, end: 20100519
  19. STELARA [Suspect]
     Active Substance: USTEKINUMAB
     Indication: PSORIASIS
     Route: 058
     Dates: start: 20100519, end: 20130119
  20. SEBIPROX [Concomitant]
     Route: 065
     Dates: start: 20160222, end: 20160926
  21. METHOTREXATE SODIUM. [Suspect]
     Active Substance: METHOTREXATE SODIUM
     Indication: PSORIASIS
     Route: 048
     Dates: start: 20100329, end: 201004
  22. LOCAPRED [Concomitant]
     Active Substance: DESONIDE
     Route: 065
     Dates: start: 20140623, end: 20141027
  23. METHOTREXATE SODIUM. [Suspect]
     Active Substance: METHOTREXATE SODIUM
     Indication: PSORIASIS
     Route: 048
     Dates: start: 200911, end: 201001
  24. METHOTREXATE SODIUM. [Suspect]
     Active Substance: METHOTREXATE SODIUM
     Indication: PSORIASIS
     Route: 048
     Dates: start: 201001, end: 20100315
  25. ENBREL [Suspect]
     Active Substance: ETANERCEPT
     Indication: PRODUCT USED FOR UNKNOWN INDICATION
     Route: 058
     Dates: start: 20150828, end: 20150910
  26. FLIXOVATE [Concomitant]
     Active Substance: FLUTICASONE PROPIONATE
     Route: 065
     Dates: start: 20160523, end: 20160926

REACTIONS (3)
  - Colorectal cancer [Recovered/Resolved]
  - Drug ineffective [Unknown]
  - Colon cancer stage II [Recovered/Resolved]

NARRATIVE: CASE EVENT DATE: 201509
